FAERS Safety Report 9603508 (Version 3)
Quarter: 2014Q3

REPORT INFORMATION
  Report Type: Report from Study
  Country: BR (occurrence: BR)
  Receive Date: 20131007
  Receipt Date: 20140826
  Transmission Date: 20150326
  Serious: Yes (Hospitalization, Other)
  Sender: FDA-Public Use
  Company Number: PHHY2013BR082361

PATIENT
  Age: 69 Year
  Sex: Female
  Weight: 78 kg

DRUGS (14)
  1. EXELON [Suspect]
     Active Substance: RIVASTIGMINE TARTRATE
     Dosage: 1 DF, QD (AT NIGHT)
     Route: 048
     Dates: start: 201307
  2. NOVOLIN N [Suspect]
     Active Substance: INSULIN HUMAN
     Indication: DIABETES MELLITUS
     Dosage: 20 IU, IN THE MORNING
     Route: 058
  3. ASPIRINA PREVENT [Concomitant]
     Active Substance: ASPIRIN
     Indication: PERIPHERAL VASCULAR DISORDER
     Dosage: 1 DF, DAILY
     Route: 048
  4. LIORAM [Concomitant]
     Indication: NERVOUSNESS
     Dosage: 1 DF, AT NIGHT
     Route: 048
     Dates: start: 201307
  5. EXELON [Suspect]
     Active Substance: RIVASTIGMINE TARTRATE
     Indication: MEMORY IMPAIRMENT
     Dosage: 1 DF, QD (IN THE MORNING)
     Route: 048
  6. HYDROCHLOROTHIAZIDE. [Suspect]
     Active Substance: HYDROCHLOROTHIAZIDE
     Dosage: UNK UKN, UNK
  7. ATACAND DUO [Concomitant]
     Indication: HYPERTENSION
     Dosage: 1 DF, IN THE MORNING
     Route: 048
  8. INSULIN [Concomitant]
     Active Substance: INSULIN NOS
     Dosage: 20 U, QD
  9. GALVUS [Concomitant]
     Active Substance: VILDAGLIPTIN
     Dosage: UNK UKN, UNK
  10. RETEMIC [Concomitant]
     Active Substance: OXYBUTYNIN
     Indication: URINARY INCONTINENCE
     Dosage: 1 DF, IN THE MORNING
     Route: 048
  11. GALVUS MET [Suspect]
     Active Substance: METFORMIN HYDROCHLORIDE\VILDAGLIPTIN
     Indication: DIABETES MELLITUS
     Dosage: 1 DF, BID (BEFORE LUNCH AND DINNER)
     Route: 048
  12. NARAMIG [Suspect]
     Active Substance: NARATRIPTAN HYDROCHLORIDE
     Indication: HEADACHE
     Dosage: UNK UKN, UNK
  13. LIPITOR [Concomitant]
     Active Substance: ATORVASTATIN CALCIUM
     Indication: BLOOD CHOLESTEROL INCREASED
     Dosage: 1 DF, DAILY
     Route: 048
  14. NORTRIPTYLINE HYDROCHLORIDE. [Concomitant]
     Active Substance: NORTRIPTYLINE HYDROCHLORIDE
     Indication: HEADACHE
     Dosage: 1 DF, PRN (WHEN SHE FELT HEADACHE)
     Route: 048
     Dates: start: 201305

REACTIONS (9)
  - Vomiting [Recovering/Resolving]
  - Asthenia [Recovering/Resolving]
  - Malaise [Unknown]
  - Retching [Recovering/Resolving]
  - Headache [Recovering/Resolving]
  - Insomnia [Unknown]
  - Hypertension [Recovering/Resolving]
  - Sleep disorder [Unknown]
  - Renal disorder [Unknown]

NARRATIVE: CASE EVENT DATE: 20131003
